FAERS Safety Report 20889679 (Version 2)
Quarter: 2022Q4

REPORT INFORMATION
  Report Type: Spontaneous
  Country: JP (occurrence: JP)
  Receive Date: 20220530
  Receipt Date: 20221201
  Transmission Date: 20230113
  Serious: Yes (Death, Hospitalization, Other)
  Sender: FDA-Public Use
  Company Number: JP-BRISTOL-MYERS SQUIBB COMPANY-BMS-2022-006979

PATIENT
  Age: 73 Year
  Sex: Male
  Weight: 72.9 kg

DRUGS (2)
  1. YERVOY [Suspect]
     Active Substance: IPILIMUMAB
     Indication: Malignant melanoma
     Dosage: NUMBER OF DOSES OF ONE DAY: 1
     Route: 041
     Dates: start: 20220228
  2. OPDIVO [Suspect]
     Active Substance: NIVOLUMAB
     Indication: Malignant melanoma
     Dosage: NUMBER OF DOSES OF ONE DAY: 1
     Route: 041
     Dates: start: 20220228

REACTIONS (8)
  - Immune-mediated dermatitis [Recovering/Resolving]
  - Acute kidney injury [Not Recovered/Not Resolved]
  - Insomnia [Not Recovered/Not Resolved]
  - Anaemia [Not Recovered/Not Resolved]
  - Tumour haemorrhage [Fatal]
  - Malignant neoplasm progression [Fatal]
  - Hydronephrosis [Not Recovered/Not Resolved]
  - Condition aggravated [Not Recovered/Not Resolved]

NARRATIVE: CASE EVENT DATE: 20220228
